FAERS Safety Report 9006736 (Version 1)
Quarter: 2013Q1

REPORT INFORMATION
  Report Type: Spontaneous
  Country: US (occurrence: US)
  Receive Date: 20130110
  Receipt Date: 20130110
  Transmission Date: 20140127
  Serious: Yes (Other)
  Sender: FDA-Public Use
  Company Number: US-BAYER-2013-002271

PATIENT
  Age: 16 Year
  Sex: Female

DRUGS (4)
  1. BEYAZ [Suspect]
     Indication: CONTRACEPTION
     Dosage: UNK
     Route: 048
     Dates: start: 20120327, end: 201204
  2. BEYAZ [Suspect]
     Indication: CONTRACEPTION
     Dosage: UNK
     Dates: start: 20120525, end: 20120703
  3. YAZ [Suspect]
     Indication: CONTRACEPTION
     Dosage: UNK
     Dates: start: 20120703, end: 20121212
  4. LOESTRIN [Suspect]
     Dosage: UNK
     Dates: start: 201204, end: 20120525

REACTIONS (4)
  - Deep vein thrombosis [Recovering/Resolving]
  - Infectious mononucleosis [Recovering/Resolving]
  - Abdominal pain lower [Recovering/Resolving]
  - Metrorrhagia [Recovering/Resolving]
